FAERS Safety Report 24533389 (Version 1)
Quarter: 2024Q4

REPORT INFORMATION
  Report Type: Spontaneous
  Country: US (occurrence: US)
  Receive Date: 20241022
  Receipt Date: 20241022
  Transmission Date: 20250114
  Serious: Yes (Other)
  Sender: AUROBINDO
  Company Number: US-AUROBINDO-AUR-APL-2024-050996

PATIENT
  Age: 63 Year
  Sex: Male

DRUGS (6)
  1. VANCOMYCIN [Suspect]
     Active Substance: VANCOMYCIN
     Indication: Staphylococcal bacteraemia
     Dosage: UNK
     Route: 065
  2. VANCOMYCIN [Suspect]
     Active Substance: VANCOMYCIN
     Indication: Arthritis bacterial
  3. LINEZOLID [Suspect]
     Active Substance: LINEZOLID
     Indication: Staphylococcal bacteraemia
     Dosage: UNK
     Route: 065
  4. LINEZOLID [Suspect]
     Active Substance: LINEZOLID
     Indication: Arthritis bacterial
  5. CEFTRIAXONE [Suspect]
     Active Substance: CEFTRIAXONE
     Indication: Staphylococcal bacteraemia
     Dosage: UNK
     Route: 065
  6. CEFTRIAXONE [Suspect]
     Active Substance: CEFTRIAXONE
     Indication: Arthritis bacterial

REACTIONS (1)
  - Drug ineffective [Unknown]
